FAERS Safety Report 10142554 (Version 2)
Quarter: 2014Q2

REPORT INFORMATION
  Report Type: Spontaneous
  Country: PT (occurrence: PT)
  Receive Date: 20140430
  Receipt Date: 20140519
  Transmission Date: 20141212
  Serious: Yes (Hospitalization)
  Sender: FDA-Public Use
  Company Number: PT-BRISTOL-MYERS SQUIBB COMPANY-20667739

PATIENT
  Sex: Male

DRUGS (1)
  1. YERVOY [Suspect]
     Dosage: SEC DOSE:07APR14?3RD DOSE (200 MG):07MAY14
     Dates: start: 20140314

REACTIONS (3)
  - Pyrexia [Unknown]
  - Diarrhoea [Recovered/Resolved]
  - Weight decreased [Unknown]
